FAERS Safety Report 8899894 (Version 2)
Quarter: 2012Q4

REPORT INFORMATION
  Report Type: Report from Study
  Country: FR (occurrence: FR)
  Receive Date: 20121109
  Receipt Date: 20121228
  Transmission Date: 20130627
  Serious: Yes (Other)
  Sender: FDA-Public Use
  Company Number: PHHY2012FR102681

PATIENT
  Sex: Female

DRUGS (1)
  1. ACLASTA/ZOLEDRONATE [Suspect]
     Indication: OSTEOPOROSIS
     Dosage: UNK UKN, UNK
     Route: 042
     Dates: start: 20110907

REACTIONS (3)
  - Dementia [Not Recovered/Not Resolved]
  - Agitation [Not Recovered/Not Resolved]
  - Incoherent [Not Recovered/Not Resolved]
